FAERS Safety Report 6369864-9 (Version None)
Quarter: 2009Q3

REPORT INFORMATION
  Report Type: 
  Country: None (occurrence: None)
  Receive Date: 20090923
  Receipt Date: 20080421
  Transmission Date: 20100115
  Serious: No
  Sender: FDA-Public Use
  Company Number: US-ASTRAZENECA-2006UW11784

PATIENT
  Age: 44 Year
  Sex: Female
  Weight: 83.5 kg

DRUGS (9)
  1. SEROQUEL [Suspect]
     Indication: SCHIZOPHRENIA
     Route: 048
     Dates: start: 20040101, end: 20040101
  2. SEROQUEL [Suspect]
     Indication: DEPRESSION
     Route: 048
     Dates: start: 20040101, end: 20040101
  3. SEROQUEL [Suspect]
     Dosage: 100 MG-200 MG DAILY
     Route: 048
     Dates: start: 20040117
  4. SEROQUEL [Suspect]
     Dosage: 100 MG-200 MG DAILY
     Route: 048
     Dates: start: 20040117
  5. GEODON [Concomitant]
     Dates: start: 20030101
  6. TRAZODONE [Concomitant]
     Dates: start: 20030101
  7. TRAZODONE [Concomitant]
  8. PROZAC [Concomitant]
  9. ATIVAN [Concomitant]

REACTIONS (5)
  - DIABETES MELLITUS [None]
  - DIABETES MELLITUS INADEQUATE CONTROL [None]
  - HYPERGLYCAEMIA [None]
  - LIMB INJURY [None]
  - TYPE 2 DIABETES MELLITUS [None]
